FAERS Safety Report 22644728 (Version 7)
Quarter: 2023Q4

REPORT INFORMATION
  Report Type: Spontaneous
  Country: US (occurrence: US)
  Receive Date: 20230627
  Receipt Date: 20231207
  Transmission Date: 20240109
  Serious: No
  Sender: FDA-Public Use
  Company Number: US-PFIZER INC-PV202300110043

PATIENT
  Age: 11 Year
  Sex: Female
  Weight: 26 kg

DRUGS (2)
  1. GENOTROPIN [Suspect]
     Active Substance: SOMATROPIN
     Indication: Short stature
     Dosage: 1.5 MG, DAILY (7 DAYS/WEEK)
     Route: 058
     Dates: start: 20230606
  2. SYNTHROID [Concomitant]
     Active Substance: LEVOTHYROXINE SODIUM
     Indication: Hypothyroidism
     Dosage: UNK, FOR YEARS
     Route: 048

REACTIONS (7)
  - Injection site pain [Unknown]
  - Extra dose administered [Unknown]
  - Product communication issue [Unknown]
  - Liquid product physical issue [Unknown]
  - Device information output issue [Unknown]
  - Product label issue [Unknown]
  - Device deployment issue [Unknown]

NARRATIVE: CASE EVENT DATE: 20230601
